FAERS Safety Report 10817294 (Version 1)
Quarter: 2015Q1

REPORT INFORMATION
  Report Type: Report from Study
  Country: US (occurrence: US)
  Receive Date: 20150218
  Receipt Date: 20150218
  Transmission Date: 20150721
  Serious: No
  Sender: FDA-Public Use
  Company Number: US-ABBVIE-14K-163-1291295-00

PATIENT
  Age: 40 Year
  Sex: Female

DRUGS (8)
  1. HUMIRA [Suspect]
     Active Substance: ADALIMUMAB
     Indication: RHEUMATOID ARTHRITIS
     Route: 065
     Dates: start: 20140721
  2. METHOTREXATE [Concomitant]
     Active Substance: METHOTREXATE
     Indication: RHEUMATOID ARTHRITIS
     Route: 048
  3. ALBOZ [Concomitant]
     Indication: PROPHYLAXIS
     Route: 048
  4. BENAZEPRIL [Concomitant]
     Active Substance: BENAZEPRIL\BENAZEPRIL HYDROCHLORIDE
     Indication: HYPERTENSION
     Route: 048
  5. MELOXICAM. [Concomitant]
     Active Substance: MELOXICAM
     Indication: RHEUMATOID ARTHRITIS
     Route: 048
  6. METHYLPRED [Concomitant]
     Active Substance: METHYLPREDNISOLONE
     Indication: RHEUMATOID ARTHRITIS
     Dosage: TWICE WEEKLY AS NEEDED
     Route: 048
  7. FOLIC ACID. [Concomitant]
     Active Substance: FOLIC ACID
     Indication: RHEUMATOID ARTHRITIS
     Route: 048
  8. HYDROCHLOROTH [Concomitant]
     Active Substance: HYDROCHLOROTHIAZIDE
     Indication: HYPERTENSION
     Route: 048

REACTIONS (3)
  - Fungal infection [Recovering/Resolving]
  - Bacterial infection [Recovering/Resolving]
  - Vaginal discharge [Unknown]

NARRATIVE: CASE EVENT DATE: 2014
